FAERS Safety Report 14901680 (Version 1)
Quarter: 2018Q2

REPORT INFORMATION
  Report Type: Report from Study
  Country: ES (occurrence: ES)
  Receive Date: 20180516
  Receipt Date: 20180516
  Transmission Date: 20180711
  Serious: Yes (Other)
  Sender: FDA-Public Use
  Company Number: ES-MYLANLABS-2018M1032476

PATIENT

DRUGS (3)
  1. EXVIERA                            /08341301/ [Interacting]
     Active Substance: DASABUVIR
     Indication: HEPATITIS C
     Route: 065
  2. ENALAPRIL [Suspect]
     Active Substance: ENALAPRIL
     Indication: PRODUCT USED FOR UNKNOWN INDICATION
     Route: 065
  3. VIEKIRAX [Interacting]
     Active Substance: OMBITASVIR\PARITAPREVIR\RITONAVIR
     Indication: HEPATITIS C
     Dosage: OMBITASVIR 12.5MG/PARITAPREVIR 75MG/RITONAVIR 50MG TWO TABLETS
     Route: 065

REACTIONS (3)
  - Metabolic acidosis [Unknown]
  - Hyperkalaemia [Unknown]
  - Drug interaction [Unknown]
